FAERS Safety Report 15477449 (Version 2)
Quarter: 2018Q4

REPORT INFORMATION
  Report Type: Report from Study
  Country: IL (occurrence: IL)
  Receive Date: 20181009
  Receipt Date: 20181105
  Transmission Date: 20190205
  Serious: Yes (Hospitalization, Other)
  Sender: FDA-Public Use
  Company Number: IL-IPSEN BIOPHARMACEUTICALS, INC.-2018-11660

PATIENT
  Age: 62 Year
  Sex: Female

DRUGS (6)
  1. FAMOTIDINE TEVA [Concomitant]
     Route: 048
  2. JANUET [Concomitant]
     Active Substance: METFORMIN HYDROCHLORIDE\SITAGLIPTIN PHOSPHATE
     Dosage: 50/1000 MG
     Route: 048
  3. CARDILOC [Concomitant]
     Active Substance: BISOPROLOL FUMARATE
     Route: 048
  4. SOMATULINE AUTOGEL 120MG [Suspect]
     Active Substance: LANREOTIDE ACETATE
     Indication: NEUROENDOCRINE TUMOUR
     Dosage: 120 MG
     Route: 065
     Dates: start: 20171026
  5. ASPIRIN. [Concomitant]
     Active Substance: ASPIRIN
     Route: 048
  6. ENALADEX [Concomitant]
     Active Substance: ENALAPRIL MALEATE
     Route: 048

REACTIONS (4)
  - Bacterial test positive [Unknown]
  - Herpes simplex encephalitis [Recovering/Resolving]
  - Epilepsy [Unknown]
  - Oral herpes [Unknown]

NARRATIVE: CASE EVENT DATE: 2018
